FAERS Safety Report 10535355 (Version 2)
Quarter: 2014Q4

REPORT INFORMATION
  Report Type: Spontaneous
  Country: US (occurrence: US)
  Receive Date: 20141022
  Receipt Date: 20141114
  Transmission Date: 20150529
  Serious: Yes (Hospitalization, Other)
  Sender: FDA-Public Use
  Company Number: US-GLAXOSMITHKLINE-US2014GSK009515

PATIENT
  Sex: Male

DRUGS (1)
  1. LAMICTAL [Suspect]
     Active Substance: LAMOTRIGINE
     Indication: NEUROPATHY PERIPHERAL
     Dosage: UNK
     Dates: start: 2009

REACTIONS (7)
  - Diabetes mellitus [Unknown]
  - Surgical failure [Unknown]
  - Fluid retention [Unknown]
  - Spinal operation [Recovered/Resolved]
  - Magnesium deficiency [Unknown]
  - Oedema [Unknown]
  - Muscle spasms [Unknown]

NARRATIVE: CASE EVENT DATE: 2009
